FAERS Safety Report 5390149-1 (Version None)
Quarter: 2007Q3

REPORT INFORMATION
  Report Type: 
  Country: None (occurrence: None)
  Receive Date: 20070716
  Receipt Date: 20070716
  Transmission Date: 20080115
  Serious: Yes (Other)
  Sender: FDA-Public Use
  Company Number: None

PATIENT
  Age: 39 Year
  Sex: Female
  Weight: 61.6892 kg

DRUGS (7)
  1. AVANDIA [Suspect]
     Indication: INSULIN RESISTANCE
     Dosage: 2 MG TWICE DAILY PO
     Route: 048
     Dates: start: 20040827, end: 20041129
  2. AVANDIA [Suspect]
     Indication: POLYCYSTIC OVARIES
     Dosage: 2 MG TWICE DAILY PO
     Route: 048
     Dates: start: 20040827, end: 20041129
  3. AVANDIA [Suspect]
     Indication: INSULIN RESISTANCE
     Dosage: 4 MG TWICE DAILY PO
     Route: 048
     Dates: start: 20041228, end: 20050130
  4. AVANDIA [Suspect]
     Indication: POLYCYSTIC OVARIES
     Dosage: 4 MG TWICE DAILY PO
     Route: 048
     Dates: start: 20041228, end: 20050130
  5. SYNTHROID [Concomitant]
  6. IMITREX [Concomitant]
  7. LOW-DOSE BIRTH CONTROL PILL [Concomitant]

REACTIONS (8)
  - ANGIOEDEMA [None]
  - FLUID RETENTION [None]
  - FOOD ALLERGY [None]
  - IMMUNE SYSTEM DISORDER [None]
  - OEDEMA [None]
  - SEASONAL ALLERGY [None]
  - STASIS DERMATITIS [None]
  - VENOUS STASIS [None]
